FAERS Safety Report 8954285 (Version 2)
Quarter: 2013Q1

REPORT INFORMATION
  Report Type: Spontaneous
  Country: GB (occurrence: None)
  Receive Date: 20121130
  Receipt Date: 20130315
  Transmission Date: 20140127
  Serious: Yes (Other)
  Sender: FDA-Public Use
  Company Number: 2012MPI00531

PATIENT
  Age: 30 Year
  Sex: Male

DRUGS (4)
  1. ADCETRIS (BRENTUXIMAB VEDOTIN) INJECTION [Suspect]
     Indication: HODGKIN^S DISEASE
     Route: 042
     Dates: start: 20121019
  2. CITALOPRAM (CITALOPRAM HYDROCHLORIDE) [Concomitant]
  3. ALLOPURINOL [Concomitant]
  4. CO-TRIMOXAZOLE (CO-TRIMOXAZOLE) [Concomitant]

REACTIONS (2)
  - Deafness [None]
  - Tinnitus [None]
